FAERS Safety Report 17017758 (Version 1)
Quarter: 2019Q4

REPORT INFORMATION
  Report Type: Spontaneous
  Country: ES (occurrence: ES)
  Receive Date: 20191111
  Receipt Date: 20191111
  Transmission Date: 20200122
  Serious: Yes (Hospitalization, Other)
  Sender: FDA-Public Use
  Company Number: ES-MYLANLABS-2019M1085677

PATIENT
  Age: 83 Year
  Sex: Male

DRUGS (1)
  1. OLMESARTAN MEDOXOMIL. [Suspect]
     Active Substance: OLMESARTAN MEDOXOMIL
     Indication: HYPERTENSION
     Dosage: 40 MILLIGRAM, QD
     Route: 048

REACTIONS (8)
  - Hypotension [Recovered/Resolved]
  - C-reactive protein increased [Recovered/Resolved]
  - Gastrointestinal hypermotility [Recovered/Resolved]
  - Renal impairment [Recovered/Resolved]
  - Decreased appetite [Recovered/Resolved]
  - Diarrhoea [Recovered/Resolved]
  - Dehydration [Recovered/Resolved]
  - Abdominal symptom [Recovered/Resolved]
